FAERS Safety Report 7482725-7 (Version None)
Quarter: 2011Q2

REPORT INFORMATION
  Report Type: 
  Country: None (occurrence: None)
  Receive Date: 20110516
  Receipt Date: 20110509
  Transmission Date: 20111010
  Serious: Yes (Life-Threatening, Hospitalization)
  Sender: FDA-Public Use
  Company Number: DE-GENZYME-CAMP-1001116

PATIENT
  Sex: Female
  Weight: 60 kg

DRUGS (6)
  1. CAMPATH [Suspect]
     Dosage: 30 MG, 1X/W
     Route: 058
  2. CAMPATH [Suspect]
     Indication: CHRONIC LYMPHOCYTIC LEUKAEMIA
     Dosage: 3 MG, 3X/W
     Route: 058
     Dates: start: 20090302
  3. CAMPATH [Suspect]
     Dosage: 15 MG, 3X/W
     Route: 058
  4. COTRIM [Concomitant]
     Indication: INFECTION PROPHYLAXIS
     Dosage: 2 TABLETS, 2X/W
     Route: 065
  5. CAMPATH [Suspect]
     Dosage: 10 MG, 3X/W
     Route: 058
  6. VALTREX [Concomitant]
     Indication: ANTIVIRAL PROPHYLAXIS
     Dosage: 2 TABLETS, UNK
     Route: 065

REACTIONS (1)
  - MYCOTIC ANEURYSM [None]
